FAERS Safety Report 26173997 (Version 1)
Quarter: 2025Q4

REPORT INFORMATION
  Report Type: Spontaneous
  Country: US (occurrence: US)
  Receive Date: 20251218
  Receipt Date: 20251218
  Transmission Date: 20260117
  Serious: No
  Sender: JOHNSON AND JOHNSON
  Company Number: US-JNJFOC-20251224490

PATIENT

DRUGS (2)
  1. SPRAVATO [Suspect]
     Active Substance: ESKETAMINE
     Indication: Product used for unknown indication
     Route: 045
  2. SPRAVATO [Suspect]
     Active Substance: ESKETAMINE
     Route: 045

REACTIONS (7)
  - Condition aggravated [Unknown]
  - Treatment noncompliance [Unknown]
  - Nervousness [Unknown]
  - Hypersensitivity [Unknown]
  - Anxiety [Unknown]
  - Feeling abnormal [Unknown]
  - Drug monitoring procedure incorrectly performed [Unknown]
